FAERS Safety Report 9825983 (Version 3)
Quarter: 2014Q1

REPORT INFORMATION
  Report Type: Spontaneous
  Country: US (occurrence: US)
  Receive Date: 20140117
  Receipt Date: 20140204
  Transmission Date: 20141002
  Serious: Yes (Other)
  Sender: FDA-Public Use
  Company Number: US-JNJFOC-20140105166

PATIENT
  Sex: Female

DRUGS (4)
  1. ULTRAM [Suspect]
     Indication: BACK INJURY
     Dosage: ONCE OR TWICE DAILY
     Route: 048
  2. ULTRAM [Suspect]
     Indication: BACK INJURY
     Route: 048
     Dates: start: 2000
  3. TRAMADOL HYDROCHLORIDE [Suspect]
     Indication: BACK INJURY
     Route: 065
  4. TRAMADOL HYDROCHLORIDE [Suspect]
     Indication: BACK INJURY
     Route: 048

REACTIONS (4)
  - Osteoarthritis [Not Recovered/Not Resolved]
  - Irritable bowel syndrome [Recovered/Resolved]
  - Condition aggravated [Not Recovered/Not Resolved]
  - Adverse event [Unknown]
